FAERS Safety Report 6500152-3 (Version None)
Quarter: 2009Q4

REPORT INFORMATION
  Report Type: 
  Country: None (occurrence: None)
  Receive Date: 20091127
  Receipt Date: 20090617
  Transmission Date: 20100525
  Serious: Yes (Hospitalization)
  Sender: FDA-Public Use
  Company Number: WAES 0711USA02145

PATIENT
  Age: 64 Year
  Sex: Female

DRUGS (3)
  1. FOSAMAX [Suspect]
     Indication: OSTEOPOROSIS
     Dosage: 70 MG/WKY/PO
     Route: 048
     Dates: start: 20030101, end: 20050701
  2. COZAAR [Concomitant]
  3. SIMVASTATIN [Concomitant]

REACTIONS (9)
  - ABSCESS JAW [None]
  - ANXIETY [None]
  - IMPAIRED HEALING [None]
  - ORAL INFECTION [None]
  - OSTEOMYELITIS [None]
  - OSTEONECROSIS [None]
  - SINUS DISORDER [None]
  - TOOTH ABSCESS [None]
  - TOOTH DISORDER [None]
